FAERS Safety Report 7704165-5 (Version None)
Quarter: 2011Q3

REPORT INFORMATION
  Report Type: 
  Country: None (occurrence: None)
  Receive Date: 20110823
  Receipt Date: 20110814
  Transmission Date: 20111222
  Serious: Yes (Hospitalization)
  Sender: FDA-Public Use
  Company Number: US-ACTELION-A-NJ2011-52769

PATIENT

DRUGS (1)
  1. VENTAVIS [Suspect]
     Indication: PULMONARY ARTERIAL HYPERTENSION
     Dosage: 5 UG, 5X DAY
     Route: 055

REACTIONS (2)
  - ATRIAL FIBRILLATION [None]
  - DYSPNOEA [None]
